FAERS Safety Report 5240504-5 (Version None)
Quarter: 2007Q1

REPORT INFORMATION
  Report Type: 
  Country: None (occurrence: None)
  Receive Date: 20070219
  Receipt Date: 20070209
  Transmission Date: 20070707
  Serious: Yes (Hospitalization)
  Sender: FDA-Public Use
  Company Number: FR-GLAXOSMITHKLINE-B0458523A

PATIENT
  Age: 55 Year
  Sex: Female
  Weight: 109 kg

DRUGS (4)
  1. ARIXTRA [Suspect]
     Indication: THROMBOPHLEBITIS SUPERFICIAL
     Dosage: 10MG PER DAY
     Route: 058
  2. NICOTINE SUBSTITUTE [Concomitant]
     Route: 048
  3. NICOTINE SUBSTITUTE [Concomitant]
     Route: 062
  4. COMPRESSION STOCKINGS [Concomitant]
     Indication: THROMBOPHLEBITIS SUPERFICIAL

REACTIONS (3)
  - ABDOMINAL PAIN [None]
  - MUSCLE HAEMORRHAGE [None]
  - OFF LABEL USE [None]
